FAERS Safety Report 20425056 (Version 1)
Quarter: 2022Q1

REPORT INFORMATION
  Report Type: Report from Study
  Country: US (occurrence: US)
  Receive Date: 20220204
  Receipt Date: 20220204
  Transmission Date: 20220423
  Serious: No
  Sender: FDA-Public Use
  Company Number: US-EXELIXIS-CABO-21036782

PATIENT
  Age: 82 Year
  Sex: Male

DRUGS (18)
  1. CABOMETYX [Suspect]
     Active Substance: CABOZANTINIB S-MALATE
     Indication: Renal cancer
     Dosage: 40 MG, QD
     Route: 048
     Dates: start: 20181004
  2. CABOMETYX [Suspect]
     Active Substance: CABOZANTINIB S-MALATE
     Dosage: 20 MG, QD
     Route: 048
  3. CABOMETYX [Suspect]
     Active Substance: CABOZANTINIB S-MALATE
     Dosage: 20 MG (5 DAYS A WEEK MONDAY TO FRIDAY)
     Route: 048
     Dates: start: 202001, end: 20210127
  4. CABOMETYX [Suspect]
     Active Substance: CABOZANTINIB S-MALATE
     Dosage: 20 MG, 5 DAYS A WEEK
     Route: 048
     Dates: start: 20210215
  5. CABOMETYX [Suspect]
     Active Substance: CABOZANTINIB S-MALATE
     Dosage: 20 MG, QD
     Route: 048
     Dates: start: 20210428
  6. CABOMETYX [Suspect]
     Active Substance: CABOZANTINIB S-MALATE
     Dosage: 20 MG (OTHER)
     Route: 048
     Dates: start: 202105
  7. AMOXICILLIN [Concomitant]
     Active Substance: AMOXICILLIN
  8. VITAMIN D3 [Concomitant]
     Active Substance: CHOLECALCIFEROL
  9. SYNTHROID [Concomitant]
     Active Substance: LEVOTHYROXINE SODIUM
  10. METOPROLOL TARTRATE [Concomitant]
     Active Substance: METOPROLOL TARTRATE
  11. HYDROCHLOROTHIAZIDE [Concomitant]
     Active Substance: HYDROCHLOROTHIAZIDE
  12. ACETAMINOPHEN\HYDROCODONE [Concomitant]
     Active Substance: ACETAMINOPHEN\HYDROCODONE
  13. WARFARIN SODIUM [Concomitant]
     Active Substance: WARFARIN SODIUM
  14. ATORVASTATIN CALCIUM [Concomitant]
     Active Substance: ATORVASTATIN CALCIUM
  15. COLACE [Concomitant]
     Active Substance: DOCUSATE SODIUM
  16. LOVASTATIN [Concomitant]
     Active Substance: LOVASTATIN
  17. VITAMIN B12 [Concomitant]
     Active Substance: CYANOCOBALAMIN
  18. FINASTERIDE [Concomitant]
     Active Substance: FINASTERIDE

REACTIONS (12)
  - Fungal skin infection [Unknown]
  - Neuropathy peripheral [Not Recovered/Not Resolved]
  - Tongue discomfort [Recovering/Resolving]
  - Blister [Recovered/Resolved]
  - Dry mouth [Unknown]
  - Weight decreased [Recovered/Resolved]
  - Glossodynia [Unknown]
  - Diarrhoea [Recovered/Resolved]
  - Rash [Unknown]
  - Fatigue [Unknown]
  - Palmar-plantar erythrodysaesthesia syndrome [Unknown]
  - Inappropriate schedule of product administration [Unknown]

NARRATIVE: CASE EVENT DATE: 20200101
